FAERS Safety Report 5327373-X (Version None)
Quarter: 2007Q2

REPORT INFORMATION
  Report Type: 
  Country: None (occurrence: None)
  Receive Date: 20070511
  Receipt Date: 20070503
  Transmission Date: 20071010
  Serious: Yes (Hospitalization, Other)
  Sender: FDA-Public Use
  Company Number: 2007BI009554

PATIENT
  Age: 48 Year
  Sex: Female
  Weight: 56.246 kg

DRUGS (2)
  1. AVONEX [Suspect]
     Indication: MULTIPLE SCLEROSIS
     Dosage: 30 UG; QW; IM
     Route: 030
     Dates: start: 20061001
  2. WARFARIN SODIUM [Concomitant]

REACTIONS (7)
  - ANAESTHETIC COMPLICATION [None]
  - APPENDICITIS PERFORATED [None]
  - DELAYED RECOVERY FROM ANAESTHESIA [None]
  - DYSPNOEA [None]
  - DYSURIA [None]
  - PAIN [None]
  - SWOLLEN TONGUE [None]
